FAERS Safety Report 5240642-7 (Version None)
Quarter: 2007Q1

REPORT INFORMATION
  Report Type: 
  Country: None (occurrence: None)
  Receive Date: 20061208
  Receipt Date: 20051019
  Transmission Date: 20070707
  Serious: Yes (Other)
  Sender: FDA-Public Use
  Company Number: 2005UW01241

PATIENT
  Age: 68 Year
  Sex: Female
  Weight: 58.513 kg

DRUGS (10)
  1. CRESTOR [Suspect]
     Indication: HYPERCHOLESTEROLAEMIA
     Dates: start: 20040501
  2. BENTYL [Concomitant]
  3. SYNTHROID [Concomitant]
  4. COZAAR [Concomitant]
  5. PREVACID [Concomitant]
  6. ASPIRIN [Concomitant]
  7. XANAX [Concomitant]
  8. NITROGLYCERIN [Concomitant]
  9. TRAVATAN [Concomitant]
  10. ULTRACET [Concomitant]

REACTIONS (3)
  - ABDOMINAL PAIN [None]
  - CONSTIPATION [None]
  - IRRITABLE BOWEL SYNDROME [None]
